FAERS Safety Report 23565731 (Version 1)
Quarter: 2024Q1

REPORT INFORMATION
  Report Type: Spontaneous
  Country: US (occurrence: US)
  Receive Date: 20240226
  Receipt Date: 20240226
  Transmission Date: 20240409
  Serious: Yes (Other)
  Sender: FDA-Public Use
  Company Number: US-AMERICAN REGENT INC-2024000617

PATIENT
  Age: 6 Year

DRUGS (1)
  1. DEXAMETHASONE SODIUM PHOSPHATE [Suspect]
     Active Substance: DEXAMETHASONE PHOSPHATE\DEXAMETHASONE SODIUM PHOSPHATE
     Indication: Acute lymphocytic leukaemia
     Dosage: UNK; HIGH DOSE
     Route: 065

REACTIONS (1)
  - Obsessive-compulsive disorder [Recovering/Resolving]
